FAERS Safety Report 5934938-0 (Version None)
Quarter: 2008Q4

REPORT INFORMATION
  Report Type: 
  Country: None (occurrence: None)
  Receive Date: 20081027
  Receipt Date: 20081010
  Transmission Date: 20090506
  Serious: Yes (Disabling)
  Sender: FDA-Public Use
  Company Number: ALA_00197_2008

PATIENT
  Age: 76 Year
  Sex: Male

DRUGS (3)
  1. ROWASA [Suspect]
     Indication: CROHN'S DISEASE
     Dosage: 1 G QD ORAL
     Route: 048
     Dates: start: 20080701
  2. PREVISCAN [Concomitant]
  3. HYDROCORTISONE [Concomitant]

REACTIONS (6)
  - ARTHRALGIA [None]
  - GAIT DISTURBANCE [None]
  - MYALGIA [None]
  - NEUROPATHY PERIPHERAL [None]
  - SENSORY LOSS [None]
  - TREMOR [None]
